FAERS Safety Report 25473959 (Version 1)
Quarter: 2025Q2

REPORT INFORMATION
  Report Type: Spontaneous
  Country: US (occurrence: US)
  Receive Date: 20250624
  Receipt Date: 20250624
  Transmission Date: 20250716
  Serious: No
  Sender: REGENERON
  Company Number: US-REGENERON PHARMACEUTICALS, INC.-2024-118887

PATIENT
  Sex: Female

DRUGS (1)
  1. EYLEA HD [Suspect]
     Active Substance: AFLIBERCEPT
     Indication: Product used for unknown indication
     Dosage: 8 MG, EVERY 5 WEEKS INTO RIGHT EYE (FORMULATION: HD VIAL)

REACTIONS (3)
  - Metamorphopsia [Unknown]
  - Diplopia [Unknown]
  - Visual impairment [Unknown]
